FAERS Safety Report 17389149 (Version 19)
Quarter: 2021Q1

REPORT INFORMATION
  Report Type: Report from Study
  Country: None (occurrence: NL)
  Receive Date: 20200206
  Receipt Date: 20210211
  Transmission Date: 20210419
  Serious: Yes (Other)
  Sender: FDA-Public Use
  Company Number: NL-ABBVIE-19K-114-2938341-00

PATIENT
  Age: 77 Year
  Sex: Male

DRUGS (10)
  1. DUODOPA [Suspect]
     Active Substance: CARBIDOPA\LEVODOPA
     Dosage: MD: 10 CD: 1.9 ED: 1.0, REMAINED AT 16 HOURS
     Route: 050
     Dates: start: 2020, end: 2020
  2. DUODOPA [Suspect]
     Active Substance: CARBIDOPA\LEVODOPA
     Dosage: MD: 10 CD: 2.0 ED: 1.5,REMAINS AT 16 HOURS
     Route: 050
     Dates: start: 2020, end: 2020
  3. DUODOPA [Suspect]
     Active Substance: CARBIDOPA\LEVODOPA
     Dosage: MD: 9.7 CD: 2.0 ED: 1.5?REMAINS AT 16 HOURS
     Route: 050
     Dates: start: 2020, end: 2020
  4. DUODOPA [Suspect]
     Active Substance: CARBIDOPA\LEVODOPA
     Dosage: MD: 9.4 ML, CD: 2.0 ML/H, ED: 1.5ML
     Route: 050
  5. DUODOPA [Suspect]
     Active Substance: CARBIDOPA\LEVODOPA
     Dosage: MD: 9.0 CD: 2.0 ED: 1.5?REMAINS AT 16 HOURS
     Route: 050
     Dates: start: 2020, end: 2020
  6. DUODOPA [Suspect]
     Active Substance: CARBIDOPA\LEVODOPA
     Indication: PARKINSON^S DISEASE
     Dosage: MD 10.0, CD 2.0 ED 1.5
     Route: 050
     Dates: start: 20190916
  7. DUODOPA [Suspect]
     Active Substance: CARBIDOPA\LEVODOPA
     Dosage: MD: 10 CD: 2.1 ED: 1.0
     Route: 050
     Dates: start: 20200203, end: 2020
  8. DUODOPA [Suspect]
     Active Substance: CARBIDOPA\LEVODOPA
     Dosage: MD: 10 CD: 1.9 ED: 1.0, REMAINED AT 16 HOURS
     Route: 050
     Dates: start: 2020, end: 2020
  9. DUODOPA [Suspect]
     Active Substance: CARBIDOPA\LEVODOPA
     Dosage: MD: 9.7ML, CD: 2.0ML/H, ED: 1.5ML, REMAINS AT 16 HOURS
     Route: 050
     Dates: start: 2020
  10. DUODOPA [Suspect]
     Active Substance: CARBIDOPA\LEVODOPA
     Dosage: MD: 10 CD: 2.0 ED: 1.0, REMAINED AT 16 HOURS
     Route: 050
     Dates: start: 2020, end: 2020

REACTIONS (56)
  - Dysstasia [Not Recovered/Not Resolved]
  - Dizziness postural [Not Recovered/Not Resolved]
  - Speech disorder [Not Recovered/Not Resolved]
  - Paraesthesia [Not Recovered/Not Resolved]
  - Bradykinesia [Not Recovered/Not Resolved]
  - Device alarm issue [Unknown]
  - Hot flush [Not Recovered/Not Resolved]
  - Stoma site discharge [Not Recovered/Not Resolved]
  - Fibroma [Recovered/Resolved]
  - Negativism [Not Recovered/Not Resolved]
  - Malaise [Not Recovered/Not Resolved]
  - Dysphagia [Not Recovered/Not Resolved]
  - Confusional state [Not Recovered/Not Resolved]
  - On and off phenomenon [Not Recovered/Not Resolved]
  - Dyskinesia [Recovered/Resolved]
  - Impaired quality of life [Unknown]
  - Delirium [Recovered/Resolved]
  - Intentional medical device removal by patient [Recovered/Resolved]
  - Posture abnormal [Not Recovered/Not Resolved]
  - Musculoskeletal stiffness [Not Recovered/Not Resolved]
  - Dysarthria [Not Recovered/Not Resolved]
  - Indifference [Not Recovered/Not Resolved]
  - Freezing phenomenon [Recovered/Resolved]
  - Device loosening [Unknown]
  - Unevaluable event [Unknown]
  - Skin cancer [Not Recovered/Not Resolved]
  - General physical health deterioration [Not Recovered/Not Resolved]
  - Intentional medical device removal by patient [Recovered/Resolved]
  - Disturbance in attention [Not Recovered/Not Resolved]
  - Head discomfort [Not Recovered/Not Resolved]
  - Mobility decreased [Not Recovered/Not Resolved]
  - Mobility decreased [Not Recovered/Not Resolved]
  - Choking [Not Recovered/Not Resolved]
  - Parkinson^s disease [Recovered/Resolved]
  - Gait disturbance [Not Recovered/Not Resolved]
  - Tension [Not Recovered/Not Resolved]
  - Aphasia [Not Recovered/Not Resolved]
  - Hyperkinesia [Recovering/Resolving]
  - Emotional distress [Recovered/Resolved]
  - Loss of personal independence in daily activities [Not Recovered/Not Resolved]
  - Dyschezia [Recovered/Resolved]
  - Muscle rigidity [Not Recovered/Not Resolved]
  - Fall [Not Recovered/Not Resolved]
  - Freezing phenomenon [Not Recovered/Not Resolved]
  - Mental impairment [Not Recovered/Not Resolved]
  - Abnormal dreams [Not Recovered/Not Resolved]
  - Decreased appetite [Recovered/Resolved]
  - Therapeutic product effect incomplete [Recovered/Resolved]
  - Unevaluable event [Not Recovered/Not Resolved]
  - Hyperhidrosis [Not Recovered/Not Resolved]
  - Memory impairment [Recovered/Resolved]
  - Urinary tract infection [Recovered/Resolved]
  - Balance disorder [Not Recovered/Not Resolved]
  - Stoma site erythema [Not Recovered/Not Resolved]
  - Unevaluable event [Not Recovered/Not Resolved]
  - Dyskinesia [Not Recovered/Not Resolved]

NARRATIVE: CASE EVENT DATE: 20190916
